FAERS Safety Report 6691831-6 (Version None)
Quarter: 2010Q2

REPORT INFORMATION
  Report Type: 
  Country: None (occurrence: None)
  Receive Date: 20100422
  Receipt Date: 20100409
  Transmission Date: 20101027
  Serious: Yes (Hospitalization)
  Sender: FDA-Public Use
  Company Number: PHHY2010CA22763

PATIENT
  Sex: Female

DRUGS (2)
  1. CLOZARIL [Suspect]
     Dosage: UNK
     Dates: start: 20070110
  2. EPIVAL [Interacting]

REACTIONS (4)
  - DIZZINESS [None]
  - DRUG INTERACTION [None]
  - NAUSEA [None]
  - VOMITING [None]
